FAERS Safety Report 7525029-6 (Version None)
Quarter: 2011Q2

REPORT INFORMATION
  Report Type: 
  Country: None (occurrence: None)
  Receive Date: 20110526
  Receipt Date: 20110519
  Transmission Date: 20111010
  Serious: Yes (Hospitalization)
  Sender: FDA-Public Use
  Company Number: 2011PL000070

PATIENT
  Age: 72 Year
  Sex: Male

DRUGS (34)
  1. QUARK PHARMA INVESTIGATIONAL DRUG [Suspect]
     Indication: PRODUCT USED FOR UNKNOWN INDICATION
     Dosage: QUARK PHARMA
  2. OTHER VITAMIN PRODUCTS, COMBINATIONS [Concomitant]
  3. ALENDRONATE SODIUM [Concomitant]
  4. FUROSEMIDE [Concomitant]
  5. IMURAN [Concomitant]
  6. PREDNISONE [Concomitant]
  7. MYCOPHENOLATE MEFETIL [Concomitant]
  8. SEPTRA DS [Concomitant]
  9. ZOLPIDEM [Concomitant]
  10. MAGNESIUM OXIDE [Concomitant]
  11. VALPROIC ACID [Concomitant]
  12. MORPHINE SULFATE [Concomitant]
  13. VALGANCICLOVIR [Concomitant]
  14. DIPHENHYDRAMINE HCL [Concomitant]
  15. PANTOPRAZOLE SODIUM [Concomitant]
  16. ANTI-THYMOCYTE GLOBULIN RABBIT NOS [Concomitant]
  17. ZOFRAN [Concomitant]
  18. MYCOPHENOLIC ACID [Concomitant]
  19. EPOETIN ALFA [Concomitant]
  20. IMURAN [Suspect]
     Indication: PRODUCT USED FOR UNKNOWN INDICATION
  21. LATHANUM CARBONATE [Concomitant]
  22. ALBUMIN (HUMAN) [Concomitant]
  23. METOPROLOL [Concomitant]
  24. TACROLIMUS [Concomitant]
  25. OMEPRAZOLE [Concomitant]
  26. LEVOTHYROXINE SODIUM [Concomitant]
  27. OMEPRAZOLE [Concomitant]
  28. TERAZOSIN HCL [Concomitant]
  29. MESALAMINE [Concomitant]
  30. DIVALPROEX SODIUM [Concomitant]
  31. PANCRELIPASE [Concomitant]
  32. ACETAMINOPHEN [Concomitant]
  33. TOLTERODINE TARTRATE [Concomitant]
  34. CLONAZEPAM [Concomitant]

REACTIONS (37)
  - CONDITION AGGRAVATED [None]
  - RENAL IMPAIRMENT [None]
  - ANAEMIA [None]
  - STAPHYLOCOCCAL INFECTION [None]
  - BACK PAIN [None]
  - HYPOKALAEMIA [None]
  - EPISTAXIS [None]
  - INCISION SITE CELLULITIS [None]
  - MENTAL STATUS CHANGES [None]
  - CHOLELITHIASIS [None]
  - HYPOMAGNESAEMIA [None]
  - ENCEPHALOPATHY [None]
  - HYPOALBUMINAEMIA [None]
  - CLOSTRIDIUM DIFFICILE COLITIS [None]
  - NORMOCHROMIC NORMOCYTIC ANAEMIA [None]
  - COLITIS ISCHAEMIC [None]
  - NEPHROLITHIASIS [None]
  - CROHN'S DISEASE [None]
  - NAUSEA [None]
  - VOMITING [None]
  - DIARRHOEA [None]
  - COMPLICATIONS OF TRANSPLANTED KIDNEY [None]
  - POST PROCEDURAL COMPLICATION [None]
  - PANCREATITIS [None]
  - INCONTINENCE [None]
  - HYPERVOLAEMIA [None]
  - ANAEMIA VITAMIN B12 DEFICIENCY [None]
  - DIVERTICULUM [None]
  - PLATELET COUNT DECREASED [None]
  - URINARY TRACT INFECTION FUNGAL [None]
  - HAEMATOCHEZIA [None]
  - BLADDER SPASM [None]
  - OROPHARYNGEAL PAIN [None]
  - AGITATION [None]
  - BK VIRUS INFECTION [None]
  - VIRAEMIA [None]
  - NEPHROGENIC ANAEMIA [None]
